FAERS Safety Report 10230822 (Version 1)
Quarter: 2014Q2

REPORT INFORMATION
  Report Type: Report from Study
  Country: CA (occurrence: CA)
  Receive Date: 20140611
  Receipt Date: 20140611
  Transmission Date: 20141212
  Serious: Yes (Hospitalization)
  Sender: FDA-Public Use
  Company Number: CA-JNJFOC-20140603298

PATIENT
  Age: 65 Year
  Sex: Male
  Weight: 69.4 kg

DRUGS (3)
  1. REMICADE [Suspect]
     Indication: CROHN^S DISEASE
     Route: 042
  2. FLOMAX [Concomitant]
     Route: 065
  3. CLAVIX [Concomitant]
     Route: 065

REACTIONS (2)
  - Prostate cancer [Unknown]
  - Urinary tract infection [Unknown]
